FAERS Safety Report 9559586 (Version 1)
Quarter: 2013Q3

REPORT INFORMATION
  Report Type: Spontaneous
  Country: US (occurrence: None)
  Receive Date: 20130906
  Receipt Date: 20130906
  Transmission Date: 20140515
  Serious: Yes (Other)
  Sender: FDA-Public Use
  Company Number: 163-POMAL-13071544

PATIENT
  Age: 84 Year
  Sex: Female
  Weight: 71.67 kg

DRUGS (7)
  1. POMALYST [Suspect]
     Indication: PLASMA CELL MYELOMA
     Route: 048
     Dates: start: 20130517
  2. ZOCOR (SIMVASTATIN) [Concomitant]
  3. DEXAMETHASONE (DEXAMETHASONE) [Concomitant]
  4. FUROSEMIDE (FUROSEMIDE) [Concomitant]
  5. NEXIUM (ESOMEPRAZOLE) [Concomitant]
  6. KLOR-CON (POTASSIUM CHLORIDE) [Concomitant]
  7. AMITRIPTYLINE HCL (AMITRIPTYLINE HYDROCHLORIDE) [Concomitant]

REACTIONS (1)
  - Red blood cell count decreased [None]
